FAERS Safety Report 26116304 (Version 1)
Quarter: 2025Q4

REPORT INFORMATION
  Report Type: Spontaneous
  Country: US (occurrence: US)
  Receive Date: 20251203
  Receipt Date: 20251203
  Transmission Date: 20260117
  Serious: Yes (Other)
  Sender: MYLAN
  Company Number: US-MYLANLABS-2025M1100140

PATIENT
  Age: 51 Year
  Sex: Female

DRUGS (2)
  1. EPINEPHRINE [Suspect]
     Active Substance: EPINEPHRINE
     Indication: Product used for unknown indication
     Dosage: 0.3 MILLIGRAM (VIA AN AUTO-INJECTOR PEN)
  2. NITROGLYCERIN [Suspect]
     Active Substance: NITROGLYCERIN
     Indication: Ischaemia
     Dosage: UNK

REACTIONS (4)
  - Ischaemia [Recovered/Resolved]
  - Accidental exposure to product [Recovered/Resolved]
  - Cyanosis [Recovered/Resolved]
  - Drug ineffective [Unknown]
